FAERS Safety Report 19886797 (Version 2)
Quarter: 2023Q4

REPORT INFORMATION
  Report Type: Report from Study
  Country: FR (occurrence: FR)
  Receive Date: 20210928
  Receipt Date: 20231023
  Transmission Date: 20240110
  Serious: Yes (Death, Hospitalization)
  Sender: FDA-Public Use
  Company Number: FR-SA-2016SA188424

PATIENT
  Age: 82 Year
  Sex: Male
  Weight: 80 kg

DRUGS (35)
  1. CABAZITAXEL [Suspect]
     Active Substance: CABAZITAXEL
     Indication: Prostate cancer metastatic
     Dosage: 50 MG,QCY
     Route: 065
     Dates: start: 20160628, end: 20160628
  2. CABAZITAXEL [Suspect]
     Active Substance: CABAZITAXEL
     Dosage: 50 MG,QCY
     Route: 065
     Dates: start: 20161003, end: 20161003
  3. PREDNISONE [Suspect]
     Active Substance: PREDNISONE
     Indication: Prostate cancer metastatic
     Dosage: 80 MG,QD
     Route: 065
     Dates: start: 20160628, end: 20161011
  4. AMLODIPINE BESYLATE [Concomitant]
     Active Substance: AMLODIPINE BESYLATE
     Indication: Hypertension
     Dosage: UNK UNK,UNK
     Route: 048
  5. VALSARTAN [Concomitant]
     Active Substance: VALSARTAN
     Indication: Hypertension
     Dosage: UNK UNK,UNK
     Route: 048
  6. HYDROCHLOROTHIAZIDE\VALSARTAN [Concomitant]
     Active Substance: HYDROCHLOROTHIAZIDE\VALSARTAN
     Indication: Hypertension
     Dosage: UNK UNK,UNK
     Route: 048
     Dates: start: 20160621
  7. EZETIMIBE\SIMVASTATIN [Concomitant]
     Active Substance: EZETIMIBE\SIMVASTATIN
     Indication: Prophylaxis
     Dosage: UNK UNK,UNK
     Route: 048
  8. PLAVIX [Concomitant]
     Active Substance: CLOPIDOGREL BISULFATE
     Indication: Carotid artery stenosis
     Dosage: UNK UNK,UNK
     Route: 048
  9. AMARYL [Concomitant]
     Active Substance: GLIMEPIRIDE
     Indication: Diabetes mellitus
     Dosage: UNK UNK,UNK
     Route: 048
     Dates: start: 2011
  10. LANTUS [Concomitant]
     Active Substance: INSULIN GLARGINE
     Indication: Diabetes mellitus
     Dosage: 20 IU,QD
     Route: 058
     Dates: start: 2011
  11. METFORMIN PAMOATE [Concomitant]
     Active Substance: METFORMIN PAMOATE
     Indication: Diabetes mellitus
     Dosage: UNK UNK,UNK
     Route: 048
     Dates: start: 2011
  12. PREDNISOLONE [Concomitant]
     Active Substance: PREDNISOLONE
     Dosage: UNK UNK,UNK
     Route: 048
     Dates: start: 20160811, end: 20160816
  13. PREDNISOLONE [Concomitant]
     Active Substance: PREDNISOLONE
     Dosage: UNK UNK,UNK
     Route: 048
     Dates: start: 20160817
  14. CLOPIDOGREL [Concomitant]
     Active Substance: CLOPIDOGREL BISULFATE
     Indication: Prophylaxis
     Dosage: UNK UNK,UNK
     Route: 048
     Dates: start: 20160811, end: 20160816
  15. METFORMIN [Concomitant]
     Active Substance: METFORMIN HYDROCHLORIDE
     Indication: Diabetes mellitus
     Dosage: UNK UNK,UNK
     Route: 048
     Dates: start: 20160811, end: 20160816
  16. PREGABALIN [Concomitant]
     Active Substance: PREGABALIN
     Dosage: UNK UNK,UNK
     Route: 048
     Dates: start: 20160811, end: 20160816
  17. INNOHEP [Concomitant]
     Active Substance: TINZAPARIN SODIUM
     Indication: Pulmonary embolism
     Dosage: 14000 IU,QD
     Route: 058
     Dates: start: 20160920
  18. PREDNISONE [Concomitant]
     Active Substance: PREDNISONE
     Dosage: UNK UNK,UNK
     Route: 048
     Dates: start: 20160811
  19. MOVICOL [Concomitant]
     Active Substance: POLYETHYLENE GLYCOL 3350\POTASSIUM CHLORIDE\SODIUM BICARBONATE\SODIUM CHLORIDE
     Indication: Diarrhoea
     Dosage: UNK
     Route: 048
     Dates: start: 20160811, end: 20160817
  20. FENTANYL [Concomitant]
     Active Substance: FENTANYL\FENTANYL CITRATE
     Indication: Bone pain
     Dosage: UNK UNK,UNK
     Route: 062
     Dates: start: 20160531, end: 20160719
  21. FENTANYL [Concomitant]
     Active Substance: FENTANYL\FENTANYL CITRATE
     Dosage: UNK UNK,UNK
     Route: 062
     Dates: start: 20160720, end: 20160811
  22. FENTANYL [Concomitant]
     Active Substance: FENTANYL\FENTANYL CITRATE
     Dosage: UNK UNK,UNK
     Route: 062
     Dates: start: 20160812
  23. ACETAMINOPHEN [Concomitant]
     Active Substance: ACETAMINOPHEN
     Indication: Bone pain
     Dosage: UNK UNK,UNK
     Route: 048
     Dates: start: 201606
  24. OXYCODONE HYDROCHLORIDE [Concomitant]
     Active Substance: OXYCODONE HYDROCHLORIDE
     Indication: Bone pain
     Dosage: UNK UNK,UNK
     Route: 048
     Dates: start: 201606
  25. NEFOPAM [Concomitant]
     Active Substance: NEFOPAM
     Dosage: UNK UNK,UNK
     Route: 030
     Dates: start: 20160812, end: 20160812
  26. FENTANYL [Concomitant]
     Active Substance: FENTANYL\FENTANYL CITRATE
     Dosage: UNK UNK,UNK
     Route: 062
     Dates: start: 20160811, end: 20160815
  27. MIDAZOLAM [Concomitant]
     Active Substance: MIDAZOLAM
     Indication: Bone pain
     Dosage: 2.5 MG,QD
     Route: 058
     Dates: start: 2016
  28. EUPANTOL [Concomitant]
     Active Substance: PANTOPRAZOLE SODIUM
     Dosage: 40 MG,UNK
     Route: 065
  29. METHYLPREDNISOLONE [Concomitant]
     Active Substance: METHYLPREDNISOLONE
     Dosage: 80 MG,QD
     Route: 065
  30. MORPHINE SULFATE [Concomitant]
     Active Substance: MORPHINE SULFATE
     Dosage: 5 MG,PRN
     Route: 065
  31. FILGRASTIM [Concomitant]
     Active Substance: FILGRASTIM
     Indication: Neutropenia
     Dosage: UNK UNK,UNK
     Route: 058
     Dates: start: 20161005, end: 20161009
  32. FILGRASTIM [Concomitant]
     Active Substance: FILGRASTIM
     Dosage: DOSE: 30 MUI
     Route: 058
     Dates: start: 20160701, end: 20161009
  33. ALUMINUM HYDROXIDE\MAGNESIUM CARBONATE\SODIUM ALGINATE [Concomitant]
     Active Substance: ALUMINUM HYDROXIDE\MAGNESIUM CARBONATE\SODIUM ALGINATE
     Indication: Gastrooesophageal reflux disease
     Dosage: UNK UNK,UNK
     Route: 065
     Dates: start: 20161003
  34. POLYETHYLENE GLYCOLS [Concomitant]
     Active Substance: POLYETHYLENE GLYCOLS
     Indication: Constipation
     Dosage: UNK UNK,UNK
     Route: 048
     Dates: start: 20160809
  35. DECAPEPTYL (ACETATE) [Concomitant]
     Active Substance: TRIPTORELIN ACETATE
     Indication: Hormone therapy
     Dosage: UNK
     Route: 058
     Dates: start: 20151003

REACTIONS (2)
  - Disease progression [Fatal]
  - Pancytopenia [Not Recovered/Not Resolved]

NARRATIVE: CASE EVENT DATE: 20161011
